FAERS Safety Report 5366522-4 (Version None)
Quarter: 2007Q2

REPORT INFORMATION
  Report Type: 
  Country: None (occurrence: None)
  Receive Date: 20070622
  Receipt Date: 20070612
  Transmission Date: 20071010
  Serious: Yes (Other)
  Sender: FDA-Public Use
  Company Number: US-PFIZER INC-2007049238

PATIENT
  Sex: Female
  Weight: 93.181 kg

DRUGS (4)
  1. LYRICA [Suspect]
     Indication: PARTIAL SEIZURES
     Dates: start: 20070501, end: 20070601
  2. TEGRETOL [Concomitant]
  3. TOPAMAX [Concomitant]
  4. KEPPRA [Concomitant]

REACTIONS (8)
  - ACTIVITIES OF DAILY LIVING IMPAIRED [None]
  - DEAFNESS [None]
  - DIPLOPIA [None]
  - DIZZINESS [None]
  - IMPAIRED WORK ABILITY [None]
  - INSOMNIA [None]
  - NAUSEA [None]
  - TINNITUS [None]
